FAERS Safety Report 8273716-7 (Version None)
Quarter: 2012Q2

REPORT INFORMATION
  Report Type: 
  Country: None (occurrence: None)
  Receive Date: 20120411
  Receipt Date: 20120229
  Transmission Date: 20120825
  Serious: No
  Sender: FDA-Public Use
  Company Number: US-TEVA-325390USA

PATIENT
  Sex: Male
  Weight: 88.53 kg

DRUGS (6)
  1. IBUPROFEN [Concomitant]
     Indication: ARTHRITIS
  2. NUVIGIL [Suspect]
     Dosage: 250 MILLIGRAM;
     Route: 048
     Dates: start: 20120101
  3. LORATADINE [Concomitant]
     Indication: HYPERSENSITIVITY
     Dosage: 10 MILLIGRAM;
     Route: 048
  4. NUVIGIL [Suspect]
     Indication: FATIGUE
     Dosage: 250 MILLIGRAM;
     Route: 048
     Dates: start: 20120101
  5. GABAPENTIN [Concomitant]
     Dosage: 200 MILLIGRAM;
     Route: 048
  6. IBUPROFEN [Concomitant]
     Indication: PAIN
     Route: 048

REACTIONS (6)
  - MUSCULAR WEAKNESS [None]
  - DYSPHAGIA [None]
  - TREMOR [None]
  - FEELING ABNORMAL [None]
  - DRUG INEFFECTIVE [None]
  - INCORRECT DOSE ADMINISTERED [None]
